FAERS Safety Report 5827658-4 (Version None)
Quarter: 2008Q3

REPORT INFORMATION
  Report Type: 
  Country: None (occurrence: None)
  Receive Date: 20080728
  Receipt Date: 20080522
  Transmission Date: 20090109
  Serious: Yes (Hospitalization)
  Sender: FDA-Public Use
  Company Number: 1000000229

PATIENT
  Age: 88 Year
  Sex: Female

DRUGS (8)
  1. ESCITALOPRAM [Suspect]
     Indication: DEPRESSION
     Dosage: 5 MG (5 MG,1 IN 1 D),ORAL
     Route: 048
     Dates: start: 20071210, end: 20071217
  2. COAPROVEL(300 MILLIGRAM) [Suspect]
     Indication: HYPERTENSION
     Dosage: 300 MG (300 MG,1 IN 1 D),ORAL
     Route: 048
     Dates: start: 20040401, end: 20071217
  3. INIPOMP(200 MILLIGRAM) [Suspect]
     Indication: ULCER
     Dosage: 200 MG (200 MG,1 IN 1 D),ORAL
     Route: 048
     Dates: start: 20071204, end: 20071217
  4. AMAREL (4 MILLIGRAM) [Suspect]
     Indication: TYPE 1 DIABETES MELLITUS
     Dosage: 4 MG (4 MG,1 IN 1 D),ORAL
     Route: 048
     Dates: start: 20040401, end: 20071217
  5. ESCITALOPRAM(ESCITALOPRAM OXALATE) [Concomitant]
  6. COAPROVEL [Concomitant]
  7. PANTOPRAZOLE SODIUM [Concomitant]
  8. AMARYL [Concomitant]

REACTIONS (8)
  - ANXIETY [None]
  - DIABETES MELLITUS INADEQUATE CONTROL [None]
  - DRUG INTERACTION [None]
  - HAEMOLYSIS [None]
  - HYPONATRAEMIA [None]
  - MALAISE [None]
  - PLATELET COUNT INCREASED [None]
  - WHITE BLOOD CELL COUNT INCREASED [None]
